FAERS Safety Report 10029752 (Version 1)
Quarter: 2014Q1

REPORT INFORMATION
  Report Type: Spontaneous
  Country: US (occurrence: None)
  Receive Date: 20140321
  Receipt Date: 20140321
  Transmission Date: 20141002
  Serious: Yes (Other)
  Sender: FDA-Public Use
  Company Number: None

PATIENT
  Age: 80 Year
  Sex: Female

DRUGS (1)
  1. MEKINIST 2 MG TAB [Suspect]
     Dosage: 2 DOSES QD PO
     Route: 048
     Dates: start: 20131101, end: 20140301

REACTIONS (2)
  - Oedema [None]
  - Rash [None]
